FAERS Safety Report 14241133 (Version 1)
Quarter: 2017Q4

REPORT INFORMATION
  Report Type: Other
  Country: ES (occurrence: ES)
  Receive Date: 20171130
  Receipt Date: 20171130
  Transmission Date: 20180321
  Serious: Yes (Other)
  Sender: FDA-Public Use
  Company Number: ES-LUNDBECK-DKLU2040074

PATIENT
  Age: 28 Month
  Sex: Male

DRUGS (3)
  1. VIGABATRIN (TABLET) [Suspect]
     Active Substance: VIGABATRIN
     Indication: EPILEPSY
     Route: 065
  2. VIGABATRIN (TABLET) [Suspect]
     Active Substance: VIGABATRIN
     Route: 065
  3. VIGABATRIN (TABLET) [Suspect]
     Active Substance: VIGABATRIN
     Route: 065

REACTIONS (2)
  - Nuclear magnetic resonance imaging brain abnormal [Recovered/Resolved]
  - Eye movement disorder [Unknown]
